FAERS Safety Report 10288922 (Version 2)
Quarter: 2014Q3

REPORT INFORMATION
  Report Type: Spontaneous
  Country: JP (occurrence: JP)
  Receive Date: 20140709
  Receipt Date: 20140728
  Transmission Date: 20150326
  Serious: Yes (Other)
  Sender: FDA-Public Use
  Company Number: JP-GILEAD-2014-0107582

PATIENT
  Age: 67 Year
  Sex: Male

DRUGS (5)
  1. HEPSERA [Suspect]
     Active Substance: ADEFOVIR DIPIVOXIL
     Indication: OFF LABEL USE
  2. ZEFIX [Suspect]
     Active Substance: LAMIVUDINE
     Indication: HEPATIC CIRRHOSIS
     Dosage: UNK DF, QD
     Route: 048
     Dates: start: 2004
  3. HEPSERA [Suspect]
     Active Substance: ADEFOVIR DIPIVOXIL
     Indication: HEPATITIS
     Dosage: UNK
     Route: 048
     Dates: start: 2002, end: 2004
  4. HEPSERA [Suspect]
     Active Substance: ADEFOVIR DIPIVOXIL
     Indication: HEPATIC CIRRHOSIS
     Dosage: UNK
     Route: 048
     Dates: start: 2004
  5. ZEFIX [Suspect]
     Active Substance: LAMIVUDINE
     Indication: HEPATITIS
     Dosage: UNK
     Route: 048
     Dates: start: 2002, end: 2004

REACTIONS (3)
  - Malaise [Unknown]
  - Renal impairment [Unknown]
  - Blood phosphorus decreased [Unknown]

NARRATIVE: CASE EVENT DATE: 2004
